FAERS Safety Report 13065431 (Version 3)
Quarter: 2017Q2

REPORT INFORMATION
  Report Type: Spontaneous
  Country: JP (occurrence: JP)
  Receive Date: 20161227
  Receipt Date: 20170407
  Transmission Date: 20170830
  Serious: Yes (Hospitalization)
  Sender: FDA-Public Use
  Company Number: JP-PFIZER INC-2016592745

PATIENT
  Age: 77 Year
  Sex: Female
  Weight: 56 kg

DRUGS (3)
  1. ZITHROMAC [Concomitant]
     Active Substance: AZITHROMYCIN DIHYDRATE
     Indication: PNEUMONIA BACTERIAL
     Dosage: 500 MG, DAILY
     Route: 041
     Dates: start: 20160607, end: 20160609
  2. GENINAX [Concomitant]
     Active Substance: GARENOXACIN MESYLATE
     Indication: PNEUMONIA BACTERIAL
     Dosage: 400 MG, DAILY
     Route: 048
     Dates: start: 20160607, end: 20160620
  3. ZOSYN [Suspect]
     Active Substance: PIPERACILLIN SODIUM\TAZOBACTAM SODIUM
     Indication: PNEUMONIA BACTERIAL
     Dosage: 4.5 G, 3X/DAY
     Route: 041
     Dates: start: 20160607, end: 20160617

REACTIONS (1)
  - Lung disorder [Recovered/Resolved]
